FAERS Safety Report 17746568 (Version 1)
Quarter: 2020Q2

REPORT INFORMATION
  Report Type: Not Available
  Country: US (occurrence: US)
  Receive Date: 20200505
  Receipt Date: 20200505
  Transmission Date: 20200714
  Serious: No
  Sender: FDA-Public Use
  Company Number: US-NEUROCRINE BIOSCIENCES INC.-2020NBI01414

PATIENT
  Age: 55 Year
  Sex: Female
  Weight: 83.99 kg

DRUGS (12)
  1. KLONOPIN [Concomitant]
     Active Substance: CLONAZEPAM
  2. LIPITOR [Concomitant]
     Active Substance: ATORVASTATIN CALCIUM
  3. LITHIUM. [Concomitant]
     Active Substance: LITHIUM
     Indication: BIPOLAR DISORDER
  4. LAMICTAL [Concomitant]
     Active Substance: LAMOTRIGINE
  5. LISINOPRIL. [Concomitant]
     Active Substance: LISINOPRIL
  6. COLACE [Concomitant]
     Active Substance: DOCUSATE SODIUM
  7. INGREZZA [Suspect]
     Active Substance: VALBENAZINE
     Indication: DYSKINESIA
     Dates: start: 2020, end: 2020
  8. WELLBUTRIN [Concomitant]
     Active Substance: BUPROPION HYDROCHLORIDE
  9. SEROQUEL [Concomitant]
     Active Substance: QUETIAPINE FUMARATE
  10. PROVIGIL [Concomitant]
     Active Substance: MODAFINIL
  11. TRINTELLIX [Concomitant]
     Active Substance: VORTIOXETINE HYDROBROMIDE
     Dosage: ONCE DAILY IN THE MORNING
  12. INGREZZA [Suspect]
     Active Substance: VALBENAZINE
     Dates: start: 2020

REACTIONS (1)
  - Therapeutic product effect decreased [Unknown]

NARRATIVE: CASE EVENT DATE: 202004
